FAERS Safety Report 10830925 (Version 1)
Quarter: 2015Q1

REPORT INFORMATION
  Report Type: Report from Study
  Country: US (occurrence: US)
  Receive Date: 20150219
  Receipt Date: 20150219
  Transmission Date: 20150721
  Serious: No
  Sender: FDA-Public Use
  Company Number: US-ABBVIE-14P-163-1193129-00

PATIENT
  Sex: Female

DRUGS (3)
  1. HUMIRA [Suspect]
     Active Substance: ADALIMUMAB
     Indication: CROHN^S DISEASE
     Dates: start: 20130930, end: 20130930
  2. HUMIRA [Suspect]
     Active Substance: ADALIMUMAB
     Dates: start: 20131014, end: 20131014
  3. HUMIRA [Suspect]
     Active Substance: ADALIMUMAB
     Dates: start: 20131028, end: 20140116

REACTIONS (1)
  - Feeling abnormal [Unknown]
